FAERS Safety Report 6598103-9 (Version None)
Quarter: 2010Q1

REPORT INFORMATION
  Report Type: 
  Country: None (occurrence: None)
  Receive Date: 20100224
  Receipt Date: 20050316
  Transmission Date: 20100710
  Serious: No
  Sender: FDA-Public Use
  Company Number: US-ALLERGAN-200502989

PATIENT
  Age: 51 Year
  Sex: Female

DRUGS (6)
  1. BOTOX [Suspect]
     Indication: TORTICOLLIS
     Dosage: 100IU, PRN
     Route: 030
  2. CLONAZEPAM [Concomitant]
     Indication: IRRITABLE BOWEL SYNDROME
     Dates: start: 19970101
  3. DONNATAL [Concomitant]
     Indication: IRRITABLE BOWEL SYNDROME
     Dates: start: 19970101
  4. FLORINEF ACETATE [Concomitant]
     Indication: SYNCOPE
     Dates: start: 20000101
  5. PRILOSEC [Concomitant]
     Indication: DRUG USE FOR UNKNOWN INDICATION
  6. ACULAR [Concomitant]
     Indication: EYE INFLAMMATION

REACTIONS (3)
  - COUGH [None]
  - DYSPNOEA [None]
  - FATIGUE [None]
